FAERS Safety Report 11543986 (Version 1)
Quarter: 2015Q3

REPORT INFORMATION
  Report Type: Spontaneous
  Country: US (occurrence: US)
  Receive Date: 20150924
  Receipt Date: 20150924
  Transmission Date: 20151125
  Serious: No
  Sender: FDA-Public Use
  Company Number: CHPA2014US015972

PATIENT
  Sex: Female

DRUGS (1)
  1. VOLTAREN XR [Suspect]
     Active Substance: DICLOFENAC SODIUM
     Dosage: 2 DF, QD
     Route: 048
     Dates: start: 201409

REACTIONS (1)
  - Ulcer [Not Recovered/Not Resolved]
